FAERS Safety Report 6443979-9 (Version None)
Quarter: 2009Q4

REPORT INFORMATION
  Report Type: 
  Country: None (occurrence: None)
  Receive Date: 20091117
  Receipt Date: 20091117
  Transmission Date: 20100525
  Serious: Yes (Other)
  Sender: FDA-Public Use
  Company Number: None

PATIENT
  Age: 39 Year
  Sex: Female
  Weight: 81.1939 kg

DRUGS (1)
  1. MUCINEX DM [Suspect]
     Indication: COUGH
     Dosage: 1 12 HOURS PO
     Route: 048
     Dates: start: 20091105, end: 20091111

REACTIONS (11)
  - ANXIETY [None]
  - ASTHENIA [None]
  - DECREASED APPETITE [None]
  - DIARRHOEA [None]
  - DISTURBANCE IN ATTENTION [None]
  - HEADACHE [None]
  - HEART RATE INCREASED [None]
  - NAUSEA [None]
  - NERVOUSNESS [None]
  - PRODUCT QUALITY ISSUE [None]
  - RESTLESSNESS [None]
